FAERS Safety Report 7022265-2 (Version None)
Quarter: 2010Q3

REPORT INFORMATION
  Report Type: 
  Country: None (occurrence: None)
  Receive Date: 20100924
  Receipt Date: 20100916
  Transmission Date: 20110219
  Serious: Yes (Other)
  Sender: FDA-Public Use
  Company Number: 011131

PATIENT

DRUGS (4)
  1. BUSULFEX [Suspect]
     Indication: STEM CELL TRANSPLANT
     Dosage: 3.2 MG/KG, DAILY DOSE, INTRAVENOUS
     Route: 042
  2. IDARUBICIN HCL [Concomitant]
  3. PHENYTOIN [Concomitant]
  4. CIPROFLOXACIN [Concomitant]

REACTIONS (2)
  - ACUTE MYELOID LEUKAEMIA RECURRENT [None]
  - STOMATITIS [None]
